FAERS Safety Report 25050860 (Version 1)
Quarter: 2025Q1

REPORT INFORMATION
  Report Type: Report from Study
  Country: CA (occurrence: CA)
  Receive Date: 20250307
  Receipt Date: 20250307
  Transmission Date: 20250408
  Serious: Yes (Hospitalization)
  Sender: JOHNSON AND JOHNSON
  Company Number: CA-JNJFOC-20250300705

PATIENT
  Sex: Female
  Weight: 57.1 kg

DRUGS (1)
  1. REMICADE [Suspect]
     Active Substance: INFLIXIMAB
     Indication: Colitis ulcerative
     Dosage: GET HER SCHEDULED INFUSION ON 28-FEB-2025
     Route: 041

REACTIONS (1)
  - Salmonellosis [Recovering/Resolving]
